FAERS Safety Report 6089622-2 (Version None)
Quarter: 2009Q1

REPORT INFORMATION
  Report Type: 
  Country: None (occurrence: None)
  Receive Date: 20090219
  Receipt Date: 20090219
  Transmission Date: 20090719
  Serious: Yes (Hospitalization)
  Sender: FDA-Public Use
  Company Number: None

PATIENT
  Sex: Female
  Weight: 64 kg

DRUGS (3)
  1. BUSULFAN 432 MG [Suspect]
     Dosage: 432 MG
  2. FLUDARABINE PHOSPHATE [Suspect]
     Dosage: 263 MG
  3. METHOTREXATE [Suspect]
     Dosage: 36 MG

REACTIONS (4)
  - ACUTE RESPIRATORY DISTRESS SYNDROME [None]
  - DIFFUSE ALVEOLAR DAMAGE [None]
  - GENERAL PHYSICAL HEALTH DETERIORATION [None]
  - IDIOPATHIC PNEUMONIA SYNDROME [None]
